FAERS Safety Report 4504351-1 (Version None)
Quarter: 2004Q4

REPORT INFORMATION
  Report Type: 
  Country: None (occurrence: None)
  Receive Date: 20041118
  Receipt Date: 20041017
  Transmission Date: 20050328
  Serious: Yes (Hospitalization)
  Sender: FDA-Public Use
  Company Number: IL-NOVOPROD-239867

PATIENT
  Age: 12 Year
  Sex: Female
  Weight: 26 kg

DRUGS (1)
  1. NORDITROPIN SIMPLEXX [Suspect]
     Indication: GROWTH HORMONE DEFICIENCY
     Dosage: .7 MG, QD
     Route: 058
     Dates: start: 20040712, end: 20041017

REACTIONS (1)
  - PETIT MAL EPILEPSY [None]
